FAERS Safety Report 13532501 (Version 1)
Quarter: 2017Q2

REPORT INFORMATION
  Report Type: Spontaneous
  Country: US (occurrence: US)
  Receive Date: 20170510
  Receipt Date: 20170510
  Transmission Date: 20170830
  Serious: No
  Sender: FDA-Public Use
  Company Number: US-ASTRAZENECA-2017SE47602

PATIENT
  Age: 91 Year
  Sex: Female

DRUGS (1)
  1. SEROQUEL [Suspect]
     Active Substance: QUETIAPINE FUMARATE
     Dosage: ONCE DAY AT NIGHT
     Route: 048

REACTIONS (3)
  - Dizziness [Unknown]
  - Dementia [Unknown]
  - Headache [Unknown]
